FAERS Safety Report 5347946-8 (Version None)
Quarter: 2007Q2

REPORT INFORMATION
  Report Type: 
  Country: None (occurrence: None)
  Receive Date: 20070511
  Receipt Date: 20070327
  Transmission Date: 20071010
  Serious: Yes (Other)
  Sender: FDA-Public Use
  Company Number: 35542

PATIENT
  Age: 56 Year
  Sex: Female

DRUGS (4)
  1. CARBOPLATIN [Suspect]
     Indication: OVARIAN GERM CELL CANCER STAGE I
     Dosage: 273MG/IV
     Route: 042
  2. GEMZAR [Concomitant]
  3. DEXAMETHASONE 0.5MG TAB [Concomitant]
  4. ALOXI [Concomitant]

REACTIONS (2)
  - ERYTHEMA [None]
  - RHINITIS ALLERGIC [None]
